FAERS Safety Report 21363778 (Version 1)
Quarter: 2022Q3

REPORT INFORMATION
  Report Type: Spontaneous
  Country: US (occurrence: US)
  Receive Date: 20220922
  Receipt Date: 20220922
  Transmission Date: 20221026
  Serious: No
  Sender: FDA-Public Use
  Company Number: US-MYLANLABS-2022M1094272

PATIENT
  Sex: Female
  Weight: 52.16 kg

DRUGS (1)
  1. XULANE [Suspect]
     Active Substance: ETHINYL ESTRADIOL\NORELGESTROMIN
     Indication: Heavy menstrual bleeding
     Dosage: UNK
     Route: 062

REACTIONS (2)
  - Product packaging quantity issue [Unknown]
  - Product use in unapproved indication [Unknown]
